FAERS Safety Report 9725414 (Version 1)
Quarter: 2013Q4

REPORT INFORMATION
  Report Type: Spontaneous
  Country: US (occurrence: None)
  Receive Date: 20131202
  Receipt Date: 20131202
  Transmission Date: 20140711
  Serious: Yes (Disabling)
  Sender: FDA-Public Use
  Company Number: None

PATIENT
  Age: 67 Year
  Sex: Female
  Weight: 63.5 kg

DRUGS (7)
  1. LEVOTHYROXINE [Suspect]
     Indication: HYPOTHYROIDISM
     Dosage: 1 TABLET
     Route: 048
     Dates: start: 20131122, end: 20131123
  2. PREMARIN CREAM [Concomitant]
  3. VIT D [Concomitant]
  4. LYSINE [Concomitant]
  5. BLACK COHOSH [Concomitant]
  6. B VITS. [Concomitant]
  7. COD LIVER OIL [Concomitant]

REACTIONS (4)
  - Dizziness [None]
  - Nausea [None]
  - Feeling abnormal [None]
  - Blood pressure increased [None]
